FAERS Safety Report 6731883-8 (Version None)
Quarter: 2010Q2

REPORT INFORMATION
  Report Type: 
  Country: None (occurrence: None)
  Receive Date: 20100514
  Receipt Date: 20100429
  Transmission Date: 20101027
  Serious: Yes (Other)
  Sender: FDA-Public Use
  Company Number: 2010BI014383

PATIENT
  Age: 59 Year
  Sex: Male

DRUGS (3)
  1. ZEVALIN [Suspect]
     Indication: DRUG USE FOR UNKNOWN INDICATION
     Dosage: IV
     Route: 042
     Dates: start: 20050101, end: 20050101
  2. RITUXIMAB [Concomitant]
  3. PREV MEDS [Concomitant]

REACTIONS (2)
  - LYMPHOMA [None]
  - MYELODYSPLASTIC SYNDROME [None]
